FAERS Safety Report 5490849-9 (Version None)
Quarter: 2007Q4

REPORT INFORMATION
  Report Type: 
  Country: None (occurrence: None)
  Receive Date: 20071019
  Receipt Date: 20071008
  Transmission Date: 20080405
  Serious: Yes (Hospitalization)
  Sender: FDA-Public Use
  Company Number: GB-JNJFOC-20071003242

PATIENT
  Age: 41 Year
  Sex: Male
  Weight: 80 kg

DRUGS (5)
  1. TRAMADOL HCL [Suspect]
     Indication: PAIN
     Route: 048
  2. NARATRIPTAN [Suspect]
     Indication: MIGRAINE
     Route: 048
  3. CYCLIZINE [Concomitant]
     Route: 065
  4. ETORICOXIB [Concomitant]
     Route: 065
  5. LANSOPRAZOLE [Concomitant]
     Route: 065

REACTIONS (3)
  - DYSPHASIA [None]
  - HYPERVENTILATION [None]
  - PARALYSIS [None]
